FAERS Safety Report 25138375 (Version 1)
Quarter: 2025Q1

REPORT INFORMATION
  Report Type: Spontaneous
  Country: US (occurrence: US)
  Receive Date: 20250330
  Receipt Date: 20250330
  Transmission Date: 20250409
  Serious: Yes (Other)
  Sender: RADIUS PHARM
  Company Number: US-RADIUS-US-RADIUS-25045786

PATIENT
  Sex: Female

DRUGS (1)
  1. TYMLOS [Suspect]
     Active Substance: ABALOPARATIDE
     Indication: Osteoporotic fracture
     Dosage: 3120 MCG/1.56 ML, 80 MICROGRAM, QD
     Route: 058
     Dates: start: 20250115

REACTIONS (1)
  - Paralysis [Not Recovered/Not Resolved]
